FAERS Safety Report 8778064 (Version 2)
Quarter: 2012Q4

REPORT INFORMATION
  Report Type: 
  Country: US (occurrence: US)
  Receive Date: 20120912
  Receipt Date: 20120921
  Transmission Date: 20130627
  Serious: No
  Sender: FDA-Public Use
  Company Number: US-ASTRAZENECA-2012SE60944

PATIENT
  Age: 48 Week
  Sex: Female
  Weight: 4.1 kg

DRUGS (12)
  1. NEXIUM [Suspect]
     Indication: GASTROOESOPHAGEAL REFLUX DISEASE
     Route: 048
     Dates: start: 201207, end: 20120722
  2. NEXIUM [Suspect]
     Indication: EROSIVE OESOPHAGITIS
     Route: 048
     Dates: start: 201207, end: 20120722
  3. NEXIUM [Suspect]
     Indication: GASTROOESOPHAGEAL REFLUX DISEASE
     Dosage: 10 MG, GIVEN INCONSISTANTLY
     Route: 048
  4. NEXIUM [Suspect]
     Indication: EROSIVE OESOPHAGITIS
     Dosage: 10 MG, GIVEN INCONSISTANTLY
     Route: 048
  5. NEXIUM [Suspect]
     Indication: GASTROOESOPHAGEAL REFLUX DISEASE
     Route: 048
     Dates: start: 20120723, end: 20120806
  6. NEXIUM [Suspect]
     Indication: EROSIVE OESOPHAGITIS
     Route: 048
     Dates: start: 20120723, end: 20120806
  7. NEXIUM [Suspect]
     Indication: GASTROOESOPHAGEAL REFLUX DISEASE
     Route: 048
     Dates: start: 20120806, end: 20120818
  8. NEXIUM [Suspect]
     Indication: EROSIVE OESOPHAGITIS
     Route: 048
     Dates: start: 20120806, end: 20120818
  9. MOPRAL [Suspect]
     Route: 048
     Dates: start: 20120819
  10. GASTROPRAZOL [Concomitant]
  11. IRON [Concomitant]
  12. POLYVISOL [Concomitant]

REACTIONS (11)
  - Thirst [Unknown]
  - Pain [Unknown]
  - Psychomotor hyperactivity [Unknown]
  - Discomfort [Unknown]
  - Irritability [Unknown]
  - Condition aggravated [Unknown]
  - Insomnia [Unknown]
  - Flatulence [Unknown]
  - Intentional drug misuse [Unknown]
  - Off label use [Unknown]
  - Drug ineffective [Unknown]
